FAERS Safety Report 21112331 (Version 1)
Quarter: 2022Q3

REPORT INFORMATION
  Report Type: Spontaneous
  Country: US (occurrence: None)
  Receive Date: 20220721
  Receipt Date: 20220721
  Transmission Date: 20221027
  Serious: Yes (Death)
  Sender: FDA-Public Use
  Company Number: None

PATIENT
  Age: 86 Year
  Sex: Female

DRUGS (1)
  1. KEYTRUDA [Suspect]
     Active Substance: PEMBROLIZUMAB
     Dosage: 200MG OTHER INTRAVENOUS ?
     Route: 042
     Dates: start: 20220708, end: 20220708

REACTIONS (1)
  - Death [None]

NARRATIVE: CASE EVENT DATE: 20220708
